FAERS Safety Report 16466042 (Version 1)
Quarter: 2019Q2

REPORT INFORMATION
  Report Type: Other
  Country: US (occurrence: US)
  Receive Date: 20190621
  Receipt Date: 20190621
  Transmission Date: 20190711
  Serious: No
  Sender: FDA-Public Use
  Company Number: US-ACORDA-ACO_158899_2019

PATIENT
  Sex: Male

DRUGS (1)
  1. INBRIJA [Suspect]
     Active Substance: LEVODOPA
     Indication: PARKINSON^S DISEASE
     Dosage: 42 MILLIGRAM, 2 CAPSULES PER DOSE
     Route: 065
     Dates: start: 20190511, end: 20190516

REACTIONS (3)
  - Drug ineffective [Unknown]
  - Nausea [Unknown]
  - Dizziness [Unknown]
